FAERS Safety Report 11150442 (Version 2)
Quarter: 2015Q2

REPORT INFORMATION
  Report Type: Spontaneous
  Country: US (occurrence: US)
  Receive Date: 20150531
  Receipt Date: 20150609
  Transmission Date: 20150821
  Serious: No
  Sender: FDA-Public Use
  Company Number: US-ASTRAZENECA-2015SE52836

PATIENT
  Age: 49 Year
  Sex: Female
  Weight: 74 kg

DRUGS (3)
  1. ORAL CONTRACEPTIVE [Concomitant]
     Active Substance: UNSPECIFIED INGREDIENT
  2. GENERESS FE [Concomitant]
     Active Substance: ETHINYL ESTRADIOL\FERROUS FUMARATE\NORETHINDRONE
  3. NEXIUM 24HR [Suspect]
     Active Substance: ESOMEPRAZOLE MAGNESIUM
     Dosage: ONE CAPSULE DAILY
     Route: 048
     Dates: start: 20150516, end: 20150525

REACTIONS (9)
  - Bone disorder [Unknown]
  - Pharyngeal oedema [Unknown]
  - Intentional product misuse [Unknown]
  - Product use issue [Recovered/Resolved]
  - Pharyngeal inflammation [Recovered/Resolved]
  - Irritability [Unknown]
  - Abdominal distension [Not Recovered/Not Resolved]
  - Sensation of foreign body [Recovered/Resolved]
  - Dysphagia [Unknown]

NARRATIVE: CASE EVENT DATE: 201505
